FAERS Safety Report 5516846-2 (Version None)
Quarter: 2007Q4

REPORT INFORMATION
  Report Type: 
  Country: None (occurrence: None)
  Receive Date: 20071109
  Receipt Date: 20071025
  Transmission Date: 20080405
  Serious: Yes (Hospitalization)
  Sender: FDA-Public Use
  Company Number: 2007S1011052

PATIENT
  Age: 44 Year
  Sex: Male

DRUGS (4)
  1. TERBINAFINE (TERBINAFINE) [Suspect]
     Indication: DRUG USE FOR UNKNOWN INDICATION
  2. AMLODIPINE [Concomitant]
  3. CARBIMAZOLE [Concomitant]
  4. DOXAZOSIN MESYLATE [Concomitant]

REACTIONS (1)
  - MALLORY-WEISS SYNDROME [None]
